FAERS Safety Report 6188942-0 (Version None)
Quarter: 2009Q2

REPORT INFORMATION
  Report Type: 
  Country: None (occurrence: None)
  Receive Date: 20090513
  Receipt Date: 20090504
  Transmission Date: 20091009
  Serious: Yes (Other)
  Sender: FDA-Public Use
  Company Number: PHEH2008US09364

PATIENT
  Sex: Female
  Weight: 80.726 kg

DRUGS (9)
  1. ZOMETA [Suspect]
     Dosage: 4MG MONTHLY
     Route: 042
     Dates: start: 20020101
  2. FEMARA [Concomitant]
     Dosage: 2.5MG DAILY
     Route: 048
     Dates: start: 20020901
  3. PROTONIX [Concomitant]
  4. METOPROLOL [Concomitant]
  5. EFFEXOR [Concomitant]
  6. LISINOPRIL [Concomitant]
  7. OXYCONTIN [Concomitant]
  8. HYDROCODONE BITARTRATE [Concomitant]
  9. NEURONTIN [Concomitant]

REACTIONS (14)
  - ANXIETY [None]
  - BACK PAIN [None]
  - BONE DISORDER [None]
  - BONE SWELLING [None]
  - EMOTIONAL DISTRESS [None]
  - HYPOAESTHESIA [None]
  - INFECTION [None]
  - INJURY [None]
  - OSTEONECROSIS [None]
  - PAIN [None]
  - PHYSICAL DISABILITY [None]
  - SCAR [None]
  - SPINAL OSTEOARTHRITIS [None]
  - TOOTH EXTRACTION [None]
